FAERS Safety Report 4623252-1 (Version None)
Quarter: 2005Q1

REPORT INFORMATION
  Report Type: 
  Country: None (occurrence: None)
  Receive Date: 20050329
  Receipt Date: 20050315
  Transmission Date: 20050727
  Serious: Yes (Disabling, Other)
  Sender: FDA-Public Use
  Company Number: A214061

PATIENT
  Age: 48 Year
  Sex: Male

DRUGS (1)
  1. VIAGRA [Suspect]
     Indication: ERECTILE DYSFUNCTION
     Dosage: 100 MG (AS NECESSARY), ORAL
     Route: 048

REACTIONS (4)
  - HYPERHIDROSIS [None]
  - OPTIC ISCHAEMIC NEUROPATHY [None]
  - RETINAL PALLOR [None]
  - VISUAL FIELD DEFECT [None]
